FAERS Safety Report 7219086-4 (Version None)
Quarter: 2011Q1

REPORT INFORMATION
  Report Type: 
  Country: None (occurrence: None)
  Receive Date: 20110111
  Receipt Date: 20110106
  Transmission Date: 20110831
  Serious: No
  Sender: FDA-Public Use
  Company Number: US-BIOGENIDEC-2011BI000917

PATIENT
  Age: 56 Year
  Sex: Male

DRUGS (1)
  1. AVONEX [Suspect]
     Indication: MULTIPLE SCLEROSIS
     Route: 030
     Dates: start: 20101214, end: 20101221

REACTIONS (5)
  - HEART RATE INCREASED [None]
  - DYSPNOEA [None]
  - INSOMNIA [None]
  - FEELING ABNORMAL [None]
  - PAIN [None]
